FAERS Safety Report 13472741 (Version 1)
Quarter: 2017Q2

REPORT INFORMATION
  Report Type: Spontaneous
  Country: US (occurrence: US)
  Receive Date: 20170424
  Receipt Date: 20170424
  Transmission Date: 20170830
  Serious: Yes (Hospitalization)
  Sender: FDA-Public Use
  Company Number: US-HORIZON-DUE-0081-2017

PATIENT
  Age: 75 Year
  Sex: Female

DRUGS (2)
  1. PEROCET [Concomitant]
  2. DUEXIS [Suspect]
     Active Substance: FAMOTIDINE\IBUPROFEN
     Indication: POST PROCEDURAL INFLAMMATION
     Dosage: 1 TABLET THREE TIMES DAILY

REACTIONS (3)
  - Off label use [Unknown]
  - Cardiac failure congestive [Unknown]
  - Fluid retention [Unknown]
